FAERS Safety Report 18997841 (Version 1)
Quarter: 2021Q1

REPORT INFORMATION
  Report Type: Spontaneous
  Country: GB (occurrence: GB)
  Receive Date: 20210311
  Receipt Date: 20210311
  Transmission Date: 20210420
  Serious: Yes (Other)
  Sender: FDA-Public Use
  Company Number: GB-TEVA-2021-GB-1888261

PATIENT
  Sex: Male

DRUGS (1)
  1. SONDATE XL [Suspect]
     Active Substance: QUETIAPINE FUMARATE
     Dosage: PRO?LONGED RELEASE
     Route: 065

REACTIONS (20)
  - Chest pain [Unknown]
  - Hallucination [Unknown]
  - Arthritis [Unknown]
  - Type 1 diabetes mellitus [Unknown]
  - Blindness [Unknown]
  - Intrusive thoughts [Unknown]
  - Chest discomfort [Unknown]
  - Myalgia [Unknown]
  - Hot flush [Unknown]
  - Suicidal ideation [Unknown]
  - Obsessive-compulsive disorder [Unknown]
  - Spermatozoa abnormal [Unknown]
  - Depression [Unknown]
  - Headache [Unknown]
  - Initial insomnia [Unknown]
  - Sperm concentration decreased [Unknown]
  - Adverse drug reaction [Unknown]
  - Anxiety [Unknown]
  - Palpitations [Unknown]
  - Weight increased [Unknown]
